FAERS Safety Report 7910455-3 (Version None)
Quarter: 2011Q4

REPORT INFORMATION
  Report Type: 
  Country: None (occurrence: None)
  Receive Date: 20111111
  Receipt Date: 20110413
  Transmission Date: 20120403
  Serious: No
  Sender: FDA-Public Use
  Company Number: US-BAYER-2011-071978

PATIENT
  Age: 62 Year
  Sex: Female
  Weight: 67 kg

DRUGS (9)
  1. VINEGAR TAB [Concomitant]
     Dosage: UNK
  2. GARLIC OIL [ALLIUM SATIVUM] [Concomitant]
     Dosage: UNK
  3. ASPIRIN [Concomitant]
     Dosage: UNK
  4. CALCIUM [Concomitant]
     Dosage: UNK
  5. MULTIVITAMIN PREPARATION + MINERAL SUPPLEMENT [Concomitant]
     Dosage: UNK
  6. VITAMIN E [Concomitant]
     Dosage: UNK
  7. ALKA-SELTZER PLUS COLD + COUGH LIQUID GELS [Suspect]
     Indication: COUGH
     Dosage: 2 USED ONLY ONE TIME - 20 COUNT
     Route: 048
     Dates: start: 20110410, end: 20110410
  8. VITAMIN D [Concomitant]
     Dosage: UNK
  9. CHOLESTEROL- AND TRIGLYCERIDE REDUCERS [Concomitant]
     Indication: HYPERCHOLESTEROLAEMIA
     Dosage: UNK

REACTIONS (5)
  - FATIGUE [None]
  - HANGOVER [None]
  - FEELING ABNORMAL [None]
  - DISTURBANCE IN ATTENTION [None]
  - HYPERSOMNIA [None]
